FAERS Safety Report 9959432 (Version 1)
Quarter: 2014Q1

REPORT INFORMATION
  Report Type: Report from Study
  Country: US (occurrence: US)
  Receive Date: 20140305
  Receipt Date: 20140305
  Transmission Date: 20141002
  Serious: No
  Sender: FDA-Public Use
  Company Number: US-ABBVIE-13P-163-1105785-00

PATIENT
  Age: 52 Year
  Sex: Male

DRUGS (8)
  1. HUMIRA [Suspect]
     Indication: CROHN^S DISEASE
     Dates: start: 201212, end: 201212
  2. HUMIRA [Suspect]
  3. HUMIRA [Suspect]
  4. SULFASALAZINE [Suspect]
     Indication: CROHN^S DISEASE
     Dates: start: 201306
  5. FOLIC ACID [Concomitant]
     Indication: CROHN^S DISEASE
  6. FERROUS SULFATE [Concomitant]
     Indication: IRON DEFICIENCY
  7. METRONIDAZOLE [Concomitant]
     Indication: CROHN^S DISEASE
  8. HYDROCODONE [Concomitant]
     Indication: PAIN

REACTIONS (2)
  - Faeces discoloured [Not Recovered/Not Resolved]
  - Chromaturia [Not Recovered/Not Resolved]
